FAERS Safety Report 11250532 (Version 1)
Quarter: 2015Q3

REPORT INFORMATION
  Report Type: Spontaneous
  Country: IL (occurrence: US)
  Receive Date: 20150708
  Receipt Date: 20150708
  Transmission Date: 20151125
  Serious: No
  Sender: FDA-Public Use
  Company Number: IL-VIIV HEALTHCARE LIMITED-IL2015084812

PATIENT
  Age: 63 Year
  Sex: Male

DRUGS (3)
  1. EPIVIR [Concomitant]
     Active Substance: LAMIVUDINE
  2. TIVICAY [Suspect]
     Active Substance: DOLUTEGRAVIR SODIUM
     Indication: HIV INFECTION
     Dosage: 50 MG, QD
     Route: 048
     Dates: start: 201505
  3. EDURANT [Concomitant]
     Active Substance: RILPIVIRINE HYDROCHLORIDE

REACTIONS (3)
  - Laboratory test abnormal [Unknown]
  - Alanine aminotransferase increased [Unknown]
  - Aspartate aminotransferase increased [Unknown]

NARRATIVE: CASE EVENT DATE: 201506
